FAERS Safety Report 8435761-8 (Version None)
Quarter: 2012Q2

REPORT INFORMATION
  Report Type: 
  Country: None (occurrence: None)
  Receive Date: 20120608
  Receipt Date: 20120526
  Transmission Date: 20120825
  Serious: Yes (Other)
  Sender: FDA-Public Use
  Company Number: ENTC2012-0230

PATIENT
  Age: 87 Year
  Sex: Male

DRUGS (2)
  1. DIOVAN HCT [Concomitant]
  2. STALEVO 50 [Suspect]
     Indication: PARKINSON'S DISEASE
     Dosage: 3 TABLETS (50/12.5/200 MG) PER DAY, ORAL
     Route: 048
     Dates: start: 20111129

REACTIONS (3)
  - OEDEMA PERIPHERAL [None]
  - GAIT DISTURBANCE [None]
  - BURNING SENSATION [None]
